FAERS Safety Report 21972373 (Version 7)
Quarter: 2023Q2

REPORT INFORMATION
  Report Type: Report from Study
  Country: US (occurrence: US)
  Receive Date: 20230209
  Receipt Date: 20230605
  Transmission Date: 20230721
  Serious: No
  Sender: FDA-Public Use
  Company Number: US-002147023-NVSC2023US026217

PATIENT
  Sex: Male

DRUGS (1)
  1. ENTRESTO [Suspect]
     Active Substance: SACUBITRIL\VALSARTAN
     Indication: Cardiac failure
     Dosage: UNK
     Route: 065
     Dates: start: 2021

REACTIONS (5)
  - Malaise [Unknown]
  - Wheezing [Unknown]
  - Dyspnoea exertional [Unknown]
  - Fluid retention [Unknown]
  - Hypotension [Not Recovered/Not Resolved]
